FAERS Safety Report 12964648 (Version 2)
Quarter: 2016Q4

REPORT INFORMATION
  Report Type: Report from Study
  Country: BR (occurrence: BR)
  Receive Date: 20161122
  Receipt Date: 20161220
  Transmission Date: 20170207
  Serious: Yes (Other)
  Sender: FDA-Public Use
  Company Number: BR-TAKEDA-2016TUS020643

PATIENT
  Age: 48 Year
  Sex: Female
  Weight: 43 kg

DRUGS (1)
  1. VEDOLIZUMAB [Suspect]
     Active Substance: VEDOLIZUMAB
     Indication: CROHN^S DISEASE
     Dosage: 300 MG, UNK
     Route: 042
     Dates: start: 20161026

REACTIONS (4)
  - Joint swelling [Unknown]
  - Spinal fracture [Unknown]
  - Arthritis [Unknown]
  - Vision blurred [Unknown]

NARRATIVE: CASE EVENT DATE: 201612
